FAERS Safety Report 19900355 (Version 1)
Quarter: 2021Q3

REPORT INFORMATION
  Report Type: Spontaneous
  Country: US (occurrence: US)
  Receive Date: 20210929
  Receipt Date: 20210929
  Transmission Date: 20211014
  Serious: No
  Sender: FDA-Public Use
  Company Number: None

PATIENT

DRUGS (1)
  1. LEUCOVORIN. [Suspect]
     Active Substance: LEUCOVORIN

REACTIONS (1)
  - Product dose omission issue [None]
